FAERS Safety Report 4608644-9 (Version None)
Quarter: 2005Q1

REPORT INFORMATION
  Report Type: 
  Country: None (occurrence: None)
  Receive Date: 20050315
  Receipt Date: 20050302
  Transmission Date: 20050727
  Serious: Yes (Hospitalization)
  Sender: FDA-Public Use
  Company Number: US-AMGEN-US118594

PATIENT
  Sex: Female

DRUGS (3)
  1. ENBREL [Suspect]
     Indication: PSORIATIC ARTHROPATHY
     Route: 058
     Dates: start: 20040701
  2. MOBIC [Concomitant]
  3. PREDNISONE [Concomitant]

REACTIONS (4)
  - ATRIAL FIBRILLATION [None]
  - DISEASE RECURRENCE [None]
  - SINUSITIS [None]
  - VENTRICULAR TACHYCARDIA [None]
